FAERS Safety Report 4366521-5 (Version None)
Quarter: 2004Q2

REPORT INFORMATION
  Report Type: 
  Country: None (occurrence: None)
  Receive Date: 20040527
  Receipt Date: 20030625
  Transmission Date: 20050107
  Serious: Yes (Hospitalization)
  Sender: FDA-Public Use
  Company Number: ES-ROCHE-340792

PATIENT
  Age: 57 Year
  Sex: Female
  Weight: 60.7 kg

DRUGS (21)
  1. DACLIZUMAB [Suspect]
     Route: 042
  2. DACLIZUMAB [Suspect]
     Route: 042
     Dates: start: 20030425, end: 20030606
  3. MYCOPHENOLATE MOFETIL [Suspect]
     Route: 048
     Dates: start: 20030425
  4. SIROLIMUS [Suspect]
     Route: 048
     Dates: start: 20030423
  5. SIROLIMUS [Suspect]
     Route: 048
     Dates: start: 20030425
  6. PREDNISONE [Suspect]
     Route: 048
  7. PREDNISONE [Suspect]
     Route: 048
     Dates: start: 20030428
  8. PANTOPRAZOLE [Concomitant]
     Route: 048
     Dates: start: 20030425
  9. FOLIC ACID [Concomitant]
     Route: 048
     Dates: start: 20030602
  10. VIT B12 [Concomitant]
     Route: 048
     Dates: start: 20030602
  11. FE [Concomitant]
     Route: 048
     Dates: start: 20030602
  12. ATORVASTATIN CALCIUM [Concomitant]
     Route: 048
     Dates: start: 20030510
  13. ATENOLOL [Concomitant]
     Route: 048
     Dates: start: 20030509
  14. TRIMETHOPRIM-SULFAMETHOXAZOLE [Concomitant]
     Route: 048
     Dates: start: 20030429
  15. LOSARTAN POTASSIUM [Concomitant]
     Route: 048
     Dates: start: 20031016
  16. SODIUM HYDROGEN PHOSPHATE [Concomitant]
     Route: 048
     Dates: start: 20030512
  17. CALCITRIOL [Concomitant]
     Route: 048
     Dates: start: 20030526
  18. DARBEPOETIN ALFA [Concomitant]
     Route: 058
     Dates: start: 20030922
  19. TORSEMIDE [Concomitant]
     Route: 048
     Dates: start: 20040427
  20. LOPERAMIDE HCL [Concomitant]
     Route: 048
     Dates: start: 20031222
  21. LORMETAZEPAM [Concomitant]
     Route: 048
     Dates: start: 20030904

REACTIONS (6)
  - CATHETER RELATED INFECTION [None]
  - FALSE POSITIVE LABORATORY RESULT [None]
  - NEUTROPENIA [None]
  - PERITONITIS [None]
  - RESPIRATORY TRACT INFECTION [None]
  - SEPSIS [None]
